FAERS Safety Report 7689267-4 (Version None)
Quarter: 2011Q3

REPORT INFORMATION
  Report Type: 
  Country: None (occurrence: None)
  Receive Date: 20110817
  Receipt Date: 20110803
  Transmission Date: 20111222
  Serious: Yes (Hospitalization)
  Sender: FDA-Public Use
  Company Number: IL-UCBSA-011430

PATIENT
  Sex: Male
  Weight: 84 kg

DRUGS (3)
  1. CERTOLIZUMAB PEGOL [Suspect]
     Route: 058
     Dates: start: 20060823, end: 20071128
  2. CERTOLIZUMAB PEGOL [Suspect]
     Dosage: NBR OF DOSES RECEIVED: 75
     Route: 058
     Dates: start: 20071217, end: 20100428
  3. CERTOLIZUMAB PEGOL [Suspect]
     Indication: RHEUMATOID ARTHRITIS
     Dosage: CDP870-027
     Route: 058
     Dates: start: 20050824, end: 20060809

REACTIONS (1)
  - POSTOPERATIVE WOUND INFECTION [None]
